FAERS Safety Report 9626059 (Version 1)
Quarter: 2013Q4

REPORT INFORMATION
  Report Type: Spontaneous
  Country: JP (occurrence: JP)
  Receive Date: 20131016
  Receipt Date: 20131016
  Transmission Date: 20140711
  Serious: Yes (Death)
  Sender: FDA-Public Use
  Company Number: JP-MALLINCKRODT-T201304574

PATIENT
  Age: 62 Year
  Sex: Male
  Weight: 55 kg

DRUGS (11)
  1. METHADONE [Suspect]
     Indication: CANCER PAIN
     Dosage: 5 MG, BID
     Route: 048
     Dates: start: 20130921, end: 20130922
  2. METHADONE [Suspect]
     Dosage: 5 MG, TID
     Route: 048
     Dates: start: 20130918, end: 20130920
  3. OXINORM                            /00045603/ [Concomitant]
     Dosage: 10 MG, PRN
     Route: 048
     Dates: start: 20130919, end: 20130922
  4. CELECOX [Concomitant]
     Dosage: 400 MG, UNK
     Route: 048
     Dates: end: 20130922
  5. XARELTO [Concomitant]
     Dosage: 10 MG, UNK
     Route: 048
     Dates: end: 20130922
  6. LYRICA [Concomitant]
     Dosage: 75 MG, UNK
     Route: 048
     Dates: end: 20130922
  7. OMEPRAL                            /00661201/ [Concomitant]
     Dosage: 40 MG, UNK
     Route: 051
  8. PRIMPERAN [Concomitant]
     Dosage: 20 MG, UNK
     Route: 051
  9. CALCICOL [Concomitant]
     Dosage: 850 MG, UNK
     Route: 051
  10. GLYCEOL                            /00744501/ [Concomitant]
     Dosage: 200 ML, UNK
     Route: 051
  11. BFLUID [Concomitant]
     Dosage: 1000 ML, UNK
     Route: 051

REACTIONS (1)
  - Extramammary Paget^s disease [Fatal]
